FAERS Safety Report 6868068-0 (Version None)
Quarter: 2010Q3

REPORT INFORMATION
  Report Type: 
  Country: None (occurrence: None)
  Receive Date: 20100722
  Receipt Date: 20100715
  Transmission Date: 20110219
  Serious: Yes (Hospitalization)
  Sender: FDA-Public Use
  Company Number: IT-ABBOTT-10P-083-0644951-00

PATIENT
  Age: 37 Year
  Sex: Male

DRUGS (1)
  1. FULCROSUPRA [Suspect]
     Indication: PRODUCT USED FOR UNKNOWN INDICATION
     Dosage: UNKNOWN
     Route: 048

REACTIONS (3)
  - EMBOLISM VENOUS [None]
  - PULMONARY EMBOLISM [None]
  - RHABDOMYOLYSIS [None]
